FAERS Safety Report 10754170 (Version 3)
Quarter: 2015Q1

REPORT INFORMATION
  Report Type: Report from Study
  Country: US (occurrence: US)
  Receive Date: 20150202
  Receipt Date: 20150324
  Transmission Date: 20150721
  Serious: Yes (Hospitalization, Other)
  Sender: FDA-Public Use
  Company Number: US-ALEXION PHARMACEUTICALS INC-A201500215

PATIENT

DRUGS (6)
  1. MENINGOCOCCAL POLYSACCHARIDE VACCINE A NOS [Concomitant]
     Active Substance: MENINGOCOCCAL POLYSACCHARIDE VACCINE A\NEISSERIA MENINGITIDIS GROUP A CAPSULAR POLYSACCHARIDE ANTIGEN
     Dosage: UNK
     Route: 065
     Dates: start: 20110224, end: 20110224
  2. PNEUMOVAX 23 [Concomitant]
     Active Substance: PNEUMOCOCCAL VACCINE, POLYVALENT 23
     Indication: IMMUNISATION
     Dosage: UNK
     Route: 065
     Dates: start: 20121105, end: 20121105
  3. SOLIRIS [Suspect]
     Active Substance: ECULIZUMAB
     Indication: PAROXYSMAL NOCTURNAL HAEMOGLOBINURIA
     Dosage: UNK, Q2W
     Route: 042
     Dates: start: 20100303, end: 20110120
  4. SOLIRIS [Suspect]
     Active Substance: ECULIZUMAB
     Indication: APLASTIC ANAEMIA
     Dosage: UNK, QMONTH
     Route: 042
     Dates: start: 20110202, end: 20141006
  5. MENINGOCOCCAL POLYSACCHARIDE VACCINE A NOS [Concomitant]
     Active Substance: MENINGOCOCCAL POLYSACCHARIDE VACCINE A\NEISSERIA MENINGITIDIS GROUP A CAPSULAR POLYSACCHARIDE ANTIGEN
     Indication: IMMUNISATION
     Dosage: UNK
     Route: 065
     Dates: start: 20110120, end: 20110120
  6. SOLIRIS [Suspect]
     Active Substance: ECULIZUMAB
     Indication: OFF LABEL USE

REACTIONS (5)
  - Fatigue [Recovered/Resolved]
  - Inappropriate schedule of drug administration [Unknown]
  - Asthenia [Recovered/Resolved]
  - Allogenic bone marrow transplantation therapy [Recovered/Resolved]
  - Product use issue [Unknown]

NARRATIVE: CASE EVENT DATE: 20100303
